FAERS Safety Report 15886242 (Version 3)
Quarter: 2021Q3

REPORT INFORMATION
  Report Type: Spontaneous
  Country: FR (occurrence: FR)
  Receive Date: 20190129
  Receipt Date: 20210910
  Transmission Date: 20211014
  Serious: Yes (Hospitalization)
  Sender: FDA-Public Use
  Company Number: FR-MYLANLABS-2019M1006686

PATIENT
  Age: 101 Year
  Sex: Female
  Weight: 44 kg

DRUGS (15)
  1. MACROGOL [Suspect]
     Active Substance: POLYETHYLENE GLYCOLS
     Indication: CONSTIPATION
     Dosage: 20 GRAM,TWICE IN MORNING, 2?0?0
     Route: 048
     Dates: start: 20181102
  2. COLECALCIFEROL [Suspect]
     Active Substance: CHOLECALCIFEROL
     Indication: HYPOVITAMINOSIS
     Dosage: 1 DOSAGE FORM, QD, 1?0?0
     Route: 048
     Dates: start: 20181102
  3. SALBUTAMOL [Suspect]
     Active Substance: ALBUTEROL
     Dosage: 1?0?1 (2.5M/2.5ML), 2 DOSAGE FORM, QD
     Route: 055
     Dates: start: 20181102, end: 20181129
  4. BUDESONIDE. [Suspect]
     Active Substance: BUDESONIDE
     Indication: ASTHMA
     Dosage: 2 DOSAGE FORM, QD, 1?0?1 (1MG/2ML)
     Route: 055
     Dates: start: 20181102, end: 20181129
  5. OXAZEPAM. [Suspect]
     Active Substance: OXAZEPAM
     Indication: ANXIETY
     Dosage: 5 MILLIGRAM, QD, 0?0?1/2 (10 MG)
     Route: 048
     Dates: start: 20181102, end: 20181206
  6. CHLORURE DE SODIUM [Suspect]
     Active Substance: SODIUM CHLORIDE
     Indication: HYPONATRAEMIA
     Dosage: 2000 MILLIGRAM, QD, 2?0?2
     Route: 048
     Dates: start: 20181102
  7. BISOPROLOL [Suspect]
     Active Substance: BISOPROLOL
     Indication: HYPERTENSION
     Dosage: 1.25 MILLIGRAM, QD, 1?0?0
     Route: 048
     Dates: start: 20181102
  8. OFLOCET                            /00731801/ [Suspect]
     Active Substance: OFLOXACIN
     Indication: RESPIRATORY TRACT INFECTION
     Dosage: 400 MILLIGRAM, QD, 1?0?1
     Route: 048
     Dates: start: 20181122, end: 20181127
  9. FUROSEMIDE. [Suspect]
     Active Substance: FUROSEMIDE
     Indication: HYPERTENSION
     Dosage: 20 MILLIGRAM, QD, 1/2?0?0 (40MG)
     Route: 048
     Dates: start: 20181102
  10. CALCIUM [Suspect]
     Active Substance: CALCIUM
     Indication: HYPOVITAMINOSIS
     Dosage: 1 DOSAGE FORM, QD, 1?0?0
     Route: 048
     Dates: start: 20181102
  11. VITAMIN D3 [Suspect]
     Active Substance: CHOLECALCIFEROL
     Indication: HYPOVITAMINOSIS
     Dosage: 1 DOSAGE FORM, QD, 1?0?0
     Route: 048
     Dates: start: 20181102
  12. SALBUTAMOL [Suspect]
     Active Substance: ALBUTEROL
     Indication: ASTHMA
     Dosage: 2 DOSAGE FORM, BID
     Route: 055
     Dates: start: 20181102, end: 20181129
  13. DIGOXINE [Suspect]
     Active Substance: DIGOXIN
     Indication: CARDIAC FAILURE
     Dosage: 0.25 MILLIGRAM, QD
     Route: 048
     Dates: start: 20181102, end: 20181206
  14. REFRESH CELLUVISC [Suspect]
     Active Substance: CARBOXYMETHYLCELLULOSE SODIUM
     Indication: LACRIMATION DECREASED
     Dosage: 3 GTT DROPS, QD, 1?1?1 GTE DANS LES 2 YEUX
     Route: 047
     Dates: start: 20181102
  15. KARDEGIC [Suspect]
     Active Substance: ASPIRIN DL-LYSINE
     Indication: THROMBOSIS PROPHYLAXIS
     Dosage: 75 MILLIGRAM, QD, 1?0?0
     Route: 048
     Dates: start: 20181102

REACTIONS (2)
  - Confusional state [Recovering/Resolving]
  - Hallucination [Recovering/Resolving]

NARRATIVE: CASE EVENT DATE: 20181123
